FAERS Safety Report 4599778-6 (Version None)
Quarter: 2005Q1

REPORT INFORMATION
  Report Type: 
  Country: None (occurrence: None)
  Receive Date: 20050303
  Receipt Date: 20050215
  Transmission Date: 20050727
  Serious: Yes (Other)
  Sender: FDA-Public Use
  Company Number: DSA_25919_2005

PATIENT
  Age: 56 Year
  Sex: Male

DRUGS (4)
  1. NIFEDIAC CC [Suspect]
     Indication: HYPERTENSION
     Dosage: 90 MG
     Dates: start: 20050203, end: 20050201
  2. PROCARDIA [Concomitant]
  3. LOPRESSOR [Concomitant]
  4. VIOXX [Concomitant]

REACTIONS (4)
  - BLOOD PRESSURE FLUCTUATION [None]
  - FEELING ABNORMAL [None]
  - PARAESTHESIA [None]
  - PHARMACEUTICAL PRODUCT COMPLAINT [None]
